FAERS Safety Report 9565151 (Version 1)
Quarter: 2013Q3

REPORT INFORMATION
  Report Type: Spontaneous
  Country: DE (occurrence: DE)
  Receive Date: 20130930
  Receipt Date: 20130930
  Transmission Date: 20140515
  Serious: Yes (Other)
  Sender: FDA-Public Use
  Company Number: DE-BAUSCH-BL-2013-005132

PATIENT
  Sex: Male

DRUGS (3)
  1. DEXAMYTREX AUGENTROPFEN [Suspect]
     Indication: ANTIBIOTIC PROPHYLAXIS
     Route: 047
  2. FLOXAL AUGENTROPFEN [Suspect]
     Indication: ANTIBIOTIC PROPHYLAXIS
     Route: 047
  3. HYLO-VISION [Concomitant]
     Indication: EYE LUBRICATION THERAPY
     Route: 047

REACTIONS (3)
  - Corneal oedema [Recovered/Resolved]
  - Visual acuity reduced [Recovered/Resolved]
  - Corneal opacity [Recovered/Resolved]
